FAERS Safety Report 6611563-X (Version None)
Quarter: 2010Q1

REPORT INFORMATION
  Report Type: 
  Country: None (occurrence: None)
  Receive Date: 20100303
  Receipt Date: 20100222
  Transmission Date: 20100710
  Serious: Yes (Hospitalization, Other)
  Sender: FDA-Public Use
  Company Number: PHHY2009BR42287

PATIENT
  Age: 92 Year
  Sex: Female
  Weight: 48 kg

DRUGS (8)
  1. TRILEPTAL [Suspect]
     Indication: VERTIGO
     Dosage: 1 DF, Q12H
     Dates: start: 20090701
  2. TRILEPTAL [Suspect]
     Dosage: 1 DF, QD
  3. TRILEPTAL [Suspect]
     Dosage: 0.5 DF, BID
  4. HYDERGINE [Concomitant]
     Dosage: 1 DF, QD,MORNING
     Route: 048
  5. ENALAPRIL MALEATE [Concomitant]
     Indication: HYPERTENSION
     Dosage: 1 TABLET BID
     Route: 048
  6. SYNTHROID [Concomitant]
     Indication: HYPOTHYROIDISM
     Dosage: 1 DF, DAILY
     Route: 048
  7. ASPIRIN [Concomitant]
     Dosage: 1 DF, DAILY,
     Route: 048
  8. INDAPAMIDE [Concomitant]
     Indication: HYPERTENSION
     Dosage: 1 DF, DAILY
     Route: 048

REACTIONS (11)
  - AMNESIA [None]
  - BLOOD PRESSURE INCREASED [None]
  - CAST APPLICATION [None]
  - DISTURBANCE IN ATTENTION [None]
  - FALL [None]
  - GAIT DISTURBANCE [None]
  - HYPERSOMNIA [None]
  - LIMB INJURY [None]
  - PYREXIA [None]
  - SOMNOLENCE [None]
  - URINARY TRACT INFECTION [None]
